FAERS Safety Report 7954239-9 (Version None)
Quarter: 2011Q4

REPORT INFORMATION
  Report Type: 
  Country: None (occurrence: None)
  Receive Date: 20111202
  Receipt Date: 20111121
  Transmission Date: 20120403
  Serious: Yes (Other)
  Sender: FDA-Public Use
  Company Number: KR-ROCHE-1017053

PATIENT
  Age: 36 Year
  Sex: Male

DRUGS (10)
  1. CLINDAMYCIN [Concomitant]
  2. IMIPENEM [Concomitant]
  3. HERBAL,HOMEOPATHIC,+ DIETARY SUPPLEMENTS [Suspect]
     Indication: PRODUCT USED FOR UNKNOWN INDICATION
  4. CLONAZEPAM [Suspect]
     Indication: PRODUCT USED FOR UNKNOWN INDICATION
  5. TIZANIDINE HCL [Concomitant]
  6. CIPROFLOXACIN [Concomitant]
  7. MEROPENEM [Concomitant]
  8. ROCEPHIN [Suspect]
     Indication: PRODUCT USED FOR UNKNOWN INDICATION
  9. VANCOMYCIN [Concomitant]
  10. METRONIDAZOLE [Concomitant]

REACTIONS (1)
  - HEPATOCELLULAR INJURY [None]
